FAERS Safety Report 9410696 (Version 1)
Quarter: 2013Q2

REPORT INFORMATION
  Report Type: Spontaneous
  Country: US (occurrence: None)
  Receive Date: 20130424
  Receipt Date: 20130424
  Transmission Date: 20140414
  Serious: Yes (Hospitalization)
  Sender: FDA-Public Use
  Company Number: PL13-33

PATIENT
  Sex: Male
  Weight: 104.33 kg

DRUGS (1)
  1. B COMPLEX WITH VITAMIN C /02146701/ [Suspect]
     Dosage: 12 TABLETS
     Route: 048
     Dates: start: 20130301

REACTIONS (3)
  - Incorrect dose administered [None]
  - Urticaria [None]
  - Drug hypersensitivity [None]
